FAERS Safety Report 14642765 (Version 1)
Quarter: 2018Q1

REPORT INFORMATION
  Report Type: Spontaneous
  Country: US (occurrence: US)
  Receive Date: 20180315
  Receipt Date: 20180315
  Transmission Date: 20180509
  Serious: Yes (Death, Hospitalization)
  Sender: FDA-Public Use
  Company Number: US-DENDREON PHARMACEUTICALS LLC-2018DEN000136

PATIENT

DRUGS (4)
  1. ELIQUIS [Interacting]
     Active Substance: APIXABAN
  2. PROVENGE [Suspect]
     Active Substance: SIPULEUCEL-T
     Indication: PROSTATE CANCER
  3. ROCEPHIN [Interacting]
     Active Substance: CEFTRIAXONE SODIUM
  4. VITAMIN C [Concomitant]
     Active Substance: ASCORBIC ACID

REACTIONS (1)
  - Infection [Fatal]

NARRATIVE: CASE EVENT DATE: 2017
